FAERS Safety Report 9032427 (Version 4)
Quarter: 2014Q1

REPORT INFORMATION
  Report Type: Report from Study
  Country: GB (occurrence: GB)
  Receive Date: 20130125
  Receipt Date: 20140213
  Transmission Date: 20141002
  Serious: Yes (Hospitalization, Other)
  Sender: FDA-Public Use
  Company Number: GB-ROCHE-1181624

PATIENT
  Age: 83 Year
  Sex: Female

DRUGS (9)
  1. RANIBIZUMAB [Suspect]
     Indication: AGE-RELATED MACULAR DEGENERATION
     Route: 050
     Dates: start: 20100701
  2. RANIBIZUMAB [Suspect]
     Route: 050
     Dates: start: 20120618
  3. RANIBIZUMAB [Suspect]
     Route: 050
     Dates: start: 20120906
  4. LISINOPRIL [Suspect]
     Indication: HYPERTENSION
     Route: 048
     Dates: start: 20000101
  5. LISINOPRIL [Suspect]
     Route: 048
     Dates: start: 20120121, end: 20120701
  6. ATENOLOL [Concomitant]
     Route: 065
     Dates: start: 20000101
  7. ATENOLOL [Concomitant]
     Route: 065
     Dates: start: 20120121
  8. AMLODIPINE [Concomitant]
     Route: 065
     Dates: start: 20000101, end: 20120121
  9. AMLODIPINE [Concomitant]
     Route: 065
     Dates: start: 20120121

REACTIONS (4)
  - Renal failure [Recovered/Resolved]
  - Endophthalmitis [Recovered/Resolved]
  - Streptococcal infection [Recovered/Resolved]
  - Vasculitis [Recovered/Resolved]
